FAERS Safety Report 9153994 (Version 3)
Quarter: 2013Q3

REPORT INFORMATION
  Report Type: Report from Study
  Country: CN (occurrence: CN)
  Receive Date: 20130311
  Receipt Date: 20130716
  Transmission Date: 20140515
  Serious: Yes (Death, Hospitalization)
  Sender: FDA-Public Use
  Company Number: CN-AMGEN-CHNCT2013015967

PATIENT
  Age: 65 Year
  Sex: Male
  Weight: 42 kg

DRUGS (1)
  1. PANITUMUMAB [Suspect]
     Indication: COLORECTAL CANCER METASTATIC
     Dosage: 250 MG, UNK
     Route: 042
     Dates: start: 20130206, end: 20130222

REACTIONS (2)
  - Electrolyte imbalance [Recovered/Resolved]
  - Multi-organ failure [Fatal]
